FAERS Safety Report 4386413-5 (Version None)
Quarter: 2004Q2

REPORT INFORMATION
  Report Type: 
  Country: None (occurrence: None)
  Receive Date: 20040623
  Receipt Date: 20040609
  Transmission Date: 20050107
  Serious: Yes (Life-Threatening, Hospitalization, Disabling)
  Sender: FDA-Public Use
  Company Number: 2004218402PL

PATIENT
  Age: 74 Year
  Sex: Female
  Weight: 50 kg

DRUGS (1)
  1. DEPO-MEDROL [Suspect]
     Indication: RHEUMATOID ARTHRITIS
     Dosage: 1 DOSE EVERY 10 DAYS, INTRA-ARTICULAR
     Route: 014
     Dates: start: 20040507, end: 20040517

REACTIONS (1)
  - RECTAL PERFORATION [None]
